FAERS Safety Report 6649160-2 (Version None)
Quarter: 2010Q1

REPORT INFORMATION
  Report Type: 
  Country: None (occurrence: None)
  Receive Date: 20100324
  Receipt Date: 20100311
  Transmission Date: 20100710
  Serious: Yes (Death)
  Sender: FDA-Public Use
  Company Number: A0851017A

PATIENT
  Sex: Female

DRUGS (6)
  1. AVANDIA [Suspect]
     Dosage: 4MG UNKNOWN
     Route: 065
     Dates: start: 20050101
  2. AMARYL [Concomitant]
     Dates: start: 19840101
  3. LIPITOR [Concomitant]
     Dates: start: 19840101
  4. CAPTOPRIL [Concomitant]
     Dates: start: 20000101
  5. CALCIUM CARBONATE [Concomitant]
     Dates: start: 20000101
  6. JANUMET [Concomitant]
     Dates: start: 20090501

REACTIONS (1)
  - INFECTION [None]
